FAERS Safety Report 4399194-6 (Version None)
Quarter: 2004Q3

REPORT INFORMATION
  Report Type: 
  Country: None (occurrence: None)
  Receive Date: 20040715
  Receipt Date: 20040715
  Transmission Date: 20050211
  Serious: Yes (Life-Threatening, Disabling, Congenital Anomaly, Other)
  Sender: FDA-Public Use
  Company Number: None

PATIENT
  Age: 31 Year
  Sex: Male
  Weight: 134.7183 kg

DRUGS (2)
  1. ADVAIR DISKUS 250/50 [Suspect]
     Indication: ASTHMA
     Dosage: 250/50 2 TIMES RESPIRATORY
     Route: 055
     Dates: start: 20020901, end: 20040714
  2. ADVAIR DISKUS 250/50 [Suspect]
     Indication: HYPERSENSITIVITY
     Dosage: 250/50 2 TIMES RESPIRATORY
     Route: 055
     Dates: start: 20020901, end: 20040714

REACTIONS (7)
  - ABDOMINAL DISTENSION [None]
  - ASTHMA [None]
  - BONE PAIN [None]
  - ORAL FUNGAL INFECTION [None]
  - PARAESTHESIA [None]
  - RESPIRATORY TRACT INFECTION [None]
  - SENSORY LOSS [None]
